FAERS Safety Report 14018234 (Version 4)
Quarter: 2017Q4

REPORT INFORMATION
  Report Type: Spontaneous
  Country: JP (occurrence: JP)
  Receive Date: 20170928
  Receipt Date: 20171113
  Transmission Date: 20180321
  Serious: Yes (Hospitalization, Other)
  Sender: FDA-Public Use
  Company Number: JP-BEH-2017083912

PATIENT
  Age: 92 Year
  Sex: Male

DRUGS (1)
  1. ALBUMINAR-5 [Suspect]
     Active Substance: ALBUMIN HUMAN
     Indication: SHOCK
     Dosage: 250 ML, UNK
     Route: 042
     Dates: start: 20170611, end: 20170611

REACTIONS (4)
  - Cholangitis acute [Recovered/Resolved]
  - Acute hepatitis C [Recovered/Resolved]
  - Jaundice cholestatic [Recovered/Resolved]
  - Liver disorder [Recovered/Resolved]

NARRATIVE: CASE EVENT DATE: 20170906
